FAERS Safety Report 24337476 (Version 1)
Quarter: 2024Q3

REPORT INFORMATION
  Report Type: Spontaneous
  Country: CN (occurrence: CN)
  Receive Date: 20240919
  Receipt Date: 20240919
  Transmission Date: 20241017
  Serious: No
  Sender: ROCHE
  Company Number: CN-ROCHE-3447680

PATIENT
  Age: 33 Year
  Sex: Female

DRUGS (2)
  1. TAMIFLU [Suspect]
     Active Substance: OSELTAMIVIR PHOSPHATE
     Indication: Upper respiratory tract infection
     Route: 048
     Dates: start: 20210628, end: 20210628
  2. HERBALS [Suspect]
     Active Substance: HERBALS
     Indication: Upper respiratory tract infection
     Route: 048
     Dates: start: 20210628, end: 20210628

REACTIONS (2)
  - Erythema [Recovering/Resolving]
  - Swelling [Recovering/Resolving]

NARRATIVE: CASE EVENT DATE: 20210628
